FAERS Safety Report 24864827 (Version 4)
Quarter: 2025Q3

REPORT INFORMATION
  Report Type: Report from Study
  Country: JP (occurrence: JP)
  Receive Date: 20250121
  Receipt Date: 20250904
  Transmission Date: 20251020
  Serious: Yes (Other)
  Sender: TAKEDA
  Company Number: JP-TAKEDA-2025TJP000604

PATIENT
  Age: 69 Year
  Sex: Male
  Weight: 54 kg

DRUGS (3)
  1. SUSOCTOCOG ALFA [Suspect]
     Active Substance: SUSOCTOCOG ALFA
     Indication: Factor VIII deficiency
     Dosage: 11000 INTERNATIONAL UNIT, QD
     Dates: start: 20250103, end: 20250104
  2. OMEPRAZOLE [Concomitant]
     Active Substance: OMEPRAZOLE
     Indication: Upper gastrointestinal haemorrhage
     Dosage: 20 MILLIGRAM, QD
     Dates: start: 20250103, end: 20250107
  3. MEROPENEM [Concomitant]
     Active Substance: MEROPENEM
     Indication: Urinary tract infection
     Dosage: 1 GRAM, TID
     Dates: start: 20250103, end: 20250108

REACTIONS (2)
  - Drug ineffective [Not Recovered/Not Resolved]
  - No adverse event [Unknown]

NARRATIVE: CASE EVENT DATE: 20250103
